FAERS Safety Report 11197476 (Version 3)
Quarter: 2015Q2

REPORT INFORMATION
  Report Type: Spontaneous
  Country: AU (occurrence: AU)
  Receive Date: 20150617
  Receipt Date: 20150623
  Transmission Date: 20150821
  Serious: Yes (Hospitalization, Other)
  Sender: FDA-Public Use
  Company Number: AU-PFIZER INC-2015199344

PATIENT
  Age: 58 Year
  Sex: Female

DRUGS (3)
  1. PARACETAMOL [Interacting]
     Active Substance: ACETAMINOPHEN
     Dosage: UNK
  2. ALPRAZOLAM. [Suspect]
     Active Substance: ALPRAZOLAM
     Dosage: UNK
  3. FLUCONAZOLE. [Interacting]
     Active Substance: FLUCONAZOLE
     Dosage: 200 MG X 50, UNK

REACTIONS (9)
  - Pneumonia aspiration [Unknown]
  - Nerve injury [Unknown]
  - Blood creatine phosphokinase increased [Unknown]
  - Depressed level of consciousness [Unknown]
  - Drug half-life increased [Unknown]
  - Sedation [Unknown]
  - Drug interaction [Unknown]
  - Intentional overdose [Unknown]
  - Hypoxia [Unknown]
